FAERS Safety Report 4446124-4 (Version None)
Quarter: 2004Q3

REPORT INFORMATION
  Report Type: 
  Country: None (occurrence: None)
  Receive Date: 20040907
  Receipt Date: 20040826
  Transmission Date: 20050211
  Serious: Yes (Hospitalization)
  Sender: FDA-Public Use
  Company Number: US-2004-030018

PATIENT
  Age: 60 Year
  Sex: Female

DRUGS (1)
  1. ULTRAVIST 300 [Suspect]
     Indication: COMPUTERISED TOMOGRAM
     Dosage: 150 ML, 1 DOSE,
     Dates: start: 20040601, end: 20040601

REACTIONS (5)
  - APHASIA [None]
  - CEREBROVASCULAR ACCIDENT [None]
  - CONTRAST MEDIA REACTION [None]
  - DYSPNOEA [None]
  - LOSS OF CONSCIOUSNESS [None]
